FAERS Safety Report 23135879 (Version 1)
Quarter: 2023Q4

REPORT INFORMATION
  Report Type: Spontaneous
  Country: US (occurrence: US)
  Receive Date: 20231101
  Receipt Date: 20231101
  Transmission Date: 20240110
  Serious: No
  Sender: FDA-Public Use
  Company Number: US-AIMMUNE THERAPEUTICS, INC.-2023AIMT00769

PATIENT

DRUGS (6)
  1. VOWST [Suspect]
     Active Substance: DONOR HUMAN STOOL SPORES (ETHANOL TREATED)
     Indication: Clostridium difficile infection
     Dosage: 4 CAPSULES, 1X/DAY
     Route: 048
     Dates: start: 20230730, end: 20230801
  2. VOWST [Suspect]
     Active Substance: DONOR HUMAN STOOL SPORES (ETHANOL TREATED)
     Dosage: 4 CAPSULES, ONCE
     Route: 048
     Dates: start: 20230801, end: 20230801
  3. PROPRANOLOL [Concomitant]
     Active Substance: PROPRANOLOL HYDROCHLORIDE
     Indication: Tremor
     Dosage: 60 MG, 1X/DAY, 2 YEARS
  4. LISINOPRIL [Concomitant]
     Active Substance: LISINOPRIL
     Indication: Hypertension
     Dosage: 20 MG, 1X/DAY, 3 YEARS
  5. VENLAFAXINE [Concomitant]
     Active Substance: VENLAFAXINE HYDROCHLORIDE
     Indication: Anxiety
     Dosage: 75 MG, 1X/DAY, 8 YEARS
  6. KROGER ALLERGY RELIEF [Concomitant]
     Active Substance: CHLOPHEDIANOL HYDROCHLORIDE\PYRILAMINE MALEATE
     Indication: Hypersensitivity
     Dosage: 10 MG, 1X/DAY, 10 YEARS

REACTIONS (3)
  - Abdominal pain [Unknown]
  - Faeces soft [Unknown]
  - Diarrhoea [Recovered/Resolved]

NARRATIVE: CASE EVENT DATE: 20230801
